FAERS Safety Report 21835341 (Version 1)
Quarter: 2023Q1

REPORT INFORMATION
  Report Type: Report from Study
  Country: US (occurrence: US)
  Receive Date: 20230109
  Receipt Date: 20230109
  Transmission Date: 20230418
  Serious: No
  Sender: FDA-Public Use
  Company Number: US-ABBVIE-4252083

PATIENT
  Sex: Female

DRUGS (1)
  1. HUMIRA [Suspect]
     Active Substance: ADALIMUMAB
     Indication: Rheumatoid arthritis
     Dosage: LAST ADMIN DATE- 2022
     Route: 058
     Dates: start: 20220715

REACTIONS (6)
  - Fatigue [Not Recovered/Not Resolved]
  - Trigger finger [Unknown]
  - Swelling [Not Recovered/Not Resolved]
  - Back pain [Unknown]
  - Drug ineffective [Unknown]
  - Arthralgia [Unknown]
